FAERS Safety Report 6496979-7 (Version None)
Quarter: 2009Q4

REPORT INFORMATION
  Report Type: 
  Country: None (occurrence: None)
  Receive Date: 20091215
  Receipt Date: 20081120
  Transmission Date: 20100525
  Serious: No
  Sender: FDA-Public Use
  Company Number: A0757627A

PATIENT
  Age: 75 Year
  Sex: Male

DRUGS (8)
  1. AVODART [Suspect]
     Indication: BENIGN PROSTATIC HYPERPLASIA
     Dosage: 1CAP PER DAY
     Route: 048
     Dates: start: 20070901
  2. BETAPACE [Concomitant]
  3. LISINOPRIL [Concomitant]
  4. NORVASC [Concomitant]
  5. FLOMAX [Concomitant]
  6. FLAX SEED [Concomitant]
  7. NIACIN [Concomitant]
  8. WARFARIN SODIUM [Concomitant]

REACTIONS (6)
  - BREAST ENLARGEMENT [None]
  - DIZZINESS [None]
  - ERECTILE DYSFUNCTION [None]
  - HEADACHE [None]
  - LIBIDO DECREASED [None]
  - PRODUCT QUALITY ISSUE [None]
